FAERS Safety Report 25877508 (Version 2)
Quarter: 2025Q4

REPORT INFORMATION
  Report Type: Spontaneous
  Country: IL (occurrence: IL)
  Receive Date: 20251003
  Receipt Date: 20251006
  Transmission Date: 20260117
  Serious: Yes (Hospitalization, Other)
  Sender: PFIZER
  Company Number: IL-MLMSERVICE-20250922-PI655187-00218-1

PATIENT
  Age: 24 Year
  Sex: Female

DRUGS (5)
  1. METHOTREXATE SODIUM [Suspect]
     Active Substance: METHOTREXATE SODIUM
     Indication: Chondroblastoma
     Dosage: 12 G/M2, HIGH DOSE METHOTREXATE (HDMTX)
     Dates: start: 2023, end: 2023
  2. METHOTREXATE SODIUM [Suspect]
     Active Substance: METHOTREXATE SODIUM
     Indication: Osteosarcoma
     Dosage: 8 G/M2 (THREE CYCLES OF HDMTX ADMINISTERED AS PER THE MAP PROTOCOL, AT REDUCED DOSE OF 8 GR/M2 EACH)
     Route: 042
     Dates: start: 2023, end: 20240124
  3. LEUCOVORIN [Concomitant]
     Active Substance: LEUCOVORIN\LEUCOVORIN CALCIUM
     Indication: Chondroblastoma
     Dosage: 15 MG/M2 (LEUCOVORIN RESCUE WAS STARTED 24 HOURS AFTER THE END OF THE METHOTREXATE INFUSION)
     Route: 042
     Dates: start: 2023
  4. LEUCOVORIN [Concomitant]
     Active Substance: LEUCOVORIN\LEUCOVORIN CALCIUM
     Indication: Osteosarcoma
     Dosage: 100 MG/M2 (FREQ: EVERY 3 H, INCREASED DOSE OF LEUCOVORIN TO 100 MG/M2 EVERY 3 HOURS FOR 12 DOSES)
     Route: 042
  5. LEUCOVORIN [Concomitant]
     Active Substance: LEUCOVORIN\LEUCOVORIN CALCIUM
     Dosage: 15 MG/M2 (FREQ: EVERY 4 HRS, LEUCOVORIN 15 MG/M2 EVERY 4 HOURS FOR 14 DOSES)
     Route: 042

REACTIONS (5)
  - Facial paralysis [Recovered/Resolved]
  - Monoparesis [Recovered/Resolved]
  - Monoparesis [Recovered/Resolved]
  - Neurotoxicity [Recovered/Resolved]
  - Dysarthria [Recovered/Resolved]

NARRATIVE: CASE EVENT DATE: 20240201
